FAERS Safety Report 10586539 (Version 3)
Quarter: 2015Q1

REPORT INFORMATION
  Report Type: Report from Study
  Country: BR (occurrence: BR)
  Receive Date: 20141117
  Receipt Date: 20150331
  Transmission Date: 20150720
  Serious: Yes (Hospitalization)
  Sender: FDA-Public Use
  Company Number: BR-BIOGENIDEC-2014BI116308

PATIENT
  Sex: Female

DRUGS (14)
  1. SUSTRATE [Concomitant]
     Active Substance: PROPATYL NITRATE
     Indication: ANGINA PECTORIS
     Route: 048
  2. AVONEX [Suspect]
     Active Substance: INTERFERON BETA-1A
     Indication: MULTIPLE SCLEROSIS
     Route: 030
     Dates: start: 20060801
  3. OMEPRAZOLE. [Concomitant]
     Active Substance: OMEPRAZOLE
  4. CLOPIDOGREL [Concomitant]
     Active Substance: CLOPIDOGREL BISULFATE
     Indication: CARDIAC DISORDER
  5. CITALOPRAM [Concomitant]
     Active Substance: CITALOPRAM HYDROBROMIDE
     Indication: CARDIAC DISORDER
  6. ASPIRINA [Concomitant]
     Active Substance: ASPIRIN
     Indication: CARDIAC DISORDER
  7. SIMVACOR [Concomitant]
     Active Substance: SIMVASTATIN
     Indication: HYPERCHOLESTEROLAEMIA
     Route: 048
  8. AVONEX [Suspect]
     Active Substance: INTERFERON BETA-1A
     Indication: MULTIPLE SCLEROSIS
     Route: 030
  9. SIMVACOR [Concomitant]
     Active Substance: SIMVASTATIN
     Indication: HYPERCHOLESTEROLAEMIA
  10. ATROVENT [Concomitant]
     Active Substance: IPRATROPIUM BROMIDE
  11. SELOKEN [Concomitant]
     Active Substance: METOPROLOL
     Indication: ANGINA PECTORIS
     Route: 048
  12. AVONEX [Suspect]
     Active Substance: INTERFERON BETA-1A
     Indication: MULTIPLE SCLEROSIS
     Route: 030
     Dates: start: 2007, end: 2014
  13. SUSTRATE [Concomitant]
     Active Substance: PROPATYL NITRATE
     Indication: BLOOD PRESSURE MANAGEMENT
     Route: 048
  14. RECONTER (ESCITALOPRAM) [Concomitant]
     Indication: DEPRESSION

REACTIONS (8)
  - Asthenia [Unknown]
  - Urinary incontinence [Unknown]
  - Pain in extremity [Unknown]
  - Adverse drug reaction [Unknown]
  - Syncope [Not Recovered/Not Resolved]
  - Feeling cold [Recovered/Resolved]
  - Memory impairment [Not Recovered/Not Resolved]
  - Headache [Unknown]

NARRATIVE: CASE EVENT DATE: 2010
